FAERS Safety Report 4316082-1 (Version None)
Quarter: 2004Q1

REPORT INFORMATION
  Report Type: 
  Country: None (occurrence: None)
  Receive Date: 20040309
  Receipt Date: 20040224
  Transmission Date: 20041129
  Serious: Yes (Hospitalization)
  Sender: FDA-Public Use
  Company Number: B0324729A

PATIENT
  Age: 21 Year
  Sex: Male

DRUGS (4)
  1. EPIVIR [Suspect]
  2. RETROVIR [Suspect]
  3. LOPINAVIR [Concomitant]
  4. STAVUDINE [Concomitant]

REACTIONS (2)
  - BONE MARROW DEPRESSION [None]
  - HEPATIC FUNCTION ABNORMAL [None]
